FAERS Safety Report 8222902-0 (Version None)
Quarter: 2012Q1

REPORT INFORMATION
  Report Type: 
  Country: None (occurrence: None)
  Receive Date: 20120320
  Receipt Date: 20120305
  Transmission Date: 20120608
  Serious: Yes (Hospitalization, Disabling, Other)
  Sender: FDA-Public Use
  Company Number: GB-WATSON-2012-04517

PATIENT
  Age: 63 Year
  Sex: Female

DRUGS (8)
  1. OXYBUTYNIN [Concomitant]
     Indication: URINARY INCONTINENCE
     Dosage: 5 MG, UNKNOWN
     Route: 048
     Dates: start: 20110801
  2. ZOPICLONE [Concomitant]
     Indication: POOR QUALITY SLEEP
     Dosage: 3.75 MG, UNKNOWN
     Route: 048
     Dates: start: 20110801
  3. CLOZARIL [Suspect]
     Dosage: 700 MG, UNKNOWN
     Route: 048
     Dates: start: 20110801
  4. RABEPRAZOLE SODIUM [Concomitant]
     Indication: GASTROOESOPHAGEAL REFLUX DISEASE
     Dosage: 20 MG, UNKNOWN
     Route: 048
     Dates: start: 20110801
  5. SENNA                              /00142201/ [Concomitant]
     Indication: CONSTIPATION
     Dosage: 15 MG, UNKNOWN
     Route: 048
     Dates: start: 20110801
  6. FERROUS SULFATE TAB [Concomitant]
     Indication: ANAEMIA
     Dosage: 400 MG, UNKNOWN
     Route: 048
     Dates: start: 20110801
  7. CLOZARIL [Suspect]
     Indication: SCHIZOPHRENIA
     Dosage: UNK
     Route: 048
     Dates: start: 19970414
  8. RISPERIDONE [Suspect]
     Indication: SCHIZOPHRENIA
     Dosage: 2 MG, UNKNOWN
     Route: 048
     Dates: start: 20110801

REACTIONS (3)
  - SCHIZOPHRENIA [None]
  - MALAISE [None]
  - MENTAL IMPAIRMENT [None]
